FAERS Safety Report 8260018-8 (Version None)
Quarter: 2012Q2

REPORT INFORMATION
  Report Type: 
  Country: None (occurrence: None)
  Receive Date: 20120404
  Receipt Date: 20120330
  Transmission Date: 20120825
  Serious: Yes (Other)
  Sender: FDA-Public Use
  Company Number: GB-PFIZER INC-2012082495

PATIENT
  Age: 50 Year
  Sex: Female

DRUGS (1)
  1. VARENICLINE TARTRATE [Suspect]
     Dosage: UNK
     Dates: start: 20120125

REACTIONS (8)
  - STRESS AT WORK [None]
  - PANIC ATTACK [None]
  - DYSPNOEA [None]
  - HAEMATOCHEZIA [None]
  - AGITATION [None]
  - NAUSEA [None]
  - DIARRHOEA [None]
  - DYSPEPSIA [None]
